FAERS Safety Report 10668397 (Version 1)
Quarter: 2014Q4

REPORT INFORMATION
  Report Type: Spontaneous
  Country: IT (occurrence: IT)
  Receive Date: 20141222
  Receipt Date: 20141222
  Transmission Date: 20150529
  Serious: Yes (Other)
  Sender: FDA-Public Use
  Company Number: IT-BAYER-2014-187621

PATIENT
  Age: 32 Year
  Sex: Female

DRUGS (6)
  1. INTERFERON ALFA NOS [Suspect]
     Active Substance: INTERFERON ALFA-2A OR INTERFERON ALFA-2B
     Indication: ESSENTIAL THROMBOCYTHAEMIA
     Dosage: DAILY DOSE 3 MIU
     Route: 058
  2. HYDROXYUREA. [Concomitant]
     Active Substance: HYDROXYUREA
     Indication: ESSENTIAL THROMBOCYTHAEMIA
  3. ANAGRELIDE [Concomitant]
     Active Substance: ANAGRELIDE
     Indication: ESSENTIAL THROMBOCYTHAEMIA
     Dosage: UNK
  4. HEPARIN [Concomitant]
     Active Substance: HEPARIN SODIUM
     Indication: PROPHYLAXIS
     Dosage: AT THE THIRD TRIMESTER OF PREGNANCY
  5. HEPARIN [Concomitant]
     Active Substance: HEPARIN SODIUM
     Indication: ESSENTIAL THROMBOCYTHAEMIA
  6. ACETYLSALICYLIC ACID({=100 MG) [Suspect]
     Active Substance: ASPIRIN
     Indication: ESSENTIAL THROMBOCYTHAEMIA
     Dosage: DAILY DOSE 100 MG

REACTIONS (4)
  - Premature delivery [None]
  - Maternal exposure during pregnancy [None]
  - Hypothyroidism [None]
  - Product use issue [None]
